FAERS Safety Report 25311194 (Version 3)
Quarter: 2025Q2

REPORT INFORMATION
  Report Type: Spontaneous
  Country: US (occurrence: US)
  Receive Date: 20250514
  Receipt Date: 20250527
  Transmission Date: 20250717
  Serious: No
  Sender: TRIS PHARMA, INC.
  Company Number: US-TRIS PHARMA, INC.-25US011963

PATIENT

DRUGS (8)
  1. ACETAMINOPHEN\HYDROCODONE BITARTRATE [Suspect]
     Active Substance: ACETAMINOPHEN\HYDROCODONE BITARTRATE
     Indication: Arthralgia
     Route: 048
  2. ACETAMINOPHEN\HYDROCODONE BITARTRATE [Suspect]
     Active Substance: ACETAMINOPHEN\HYDROCODONE BITARTRATE
     Route: 048
  3. ORENCIA [Concomitant]
     Active Substance: ABATACEPT
     Indication: Rheumatoid arthritis
     Route: 042
  4. ORENCIA [Concomitant]
     Active Substance: ABATACEPT
     Indication: Osteoporosis
  5. ALPRAZOLAM [Interacting]
     Active Substance: ALPRAZOLAM
     Indication: Pain
     Route: 048
  6. TRAZODONE [Interacting]
     Active Substance: TRAZODONE HYDROCHLORIDE
     Indication: Pain
     Route: 048
  7. CANNABIS SATIVA SUBSP. INDICA TOP [Interacting]
     Active Substance: CANNABIS SATIVA SUBSP. INDICA TOP
     Indication: Product used for unknown indication
  8. UNSPECIFIED INGREDIENT [Concomitant]
     Active Substance: UNSPECIFIED INGREDIENT
     Indication: Product used for unknown indication

REACTIONS (3)
  - Dysphonia [Not Recovered/Not Resolved]
  - Labelled drug-drug interaction issue [Unknown]
  - Withdrawal syndrome [Not Recovered/Not Resolved]
